FAERS Safety Report 19684510 (Version 5)
Quarter: 2022Q1

REPORT INFORMATION
  Report Type: Report from Study
  Country: US (occurrence: US)
  Receive Date: 20210811
  Receipt Date: 20220211
  Transmission Date: 20220423
  Serious: No
  Sender: FDA-Public Use
  Company Number: NVSC2021US171728

PATIENT
  Sex: Male

DRUGS (1)
  1. COSENTYX [Suspect]
     Active Substance: SECUKINUMAB
     Indication: Product used for unknown indication
     Dosage: 300 MG, QMO
     Route: 058

REACTIONS (6)
  - Arthritis [Unknown]
  - Arthralgia [Unknown]
  - Tendon pain [Unknown]
  - Rash [Unknown]
  - Dry skin [Unknown]
  - Skin disorder [Unknown]
